FAERS Safety Report 21888675 (Version 1)
Quarter: 2023Q1

REPORT INFORMATION
  Report Type: Spontaneous
  Country: US (occurrence: US)
  Receive Date: 20230120
  Receipt Date: 20230120
  Transmission Date: 20230417
  Serious: No
  Sender: FDA-Public Use
  Company Number: US-ABBVIE-4268721

PATIENT
  Age: 34 Year
  Sex: Female
  Weight: 95.254 kg

DRUGS (4)
  1. HUMIRA [Suspect]
     Active Substance: ADALIMUMAB
     Indication: Hidradenitis
     Route: 058
     Dates: start: 202208
  2. AZELASTINE [Concomitant]
     Active Substance: AZELASTINE
     Indication: Upper-airway cough syndrome
  3. ALLEGRA [Concomitant]
     Active Substance: FEXOFENADINE HYDROCHLORIDE
     Indication: Injection site reaction
  4. IPRATROPIUM [Concomitant]
     Active Substance: IPRATROPIUM
     Indication: Upper-airway cough syndrome

REACTIONS (5)
  - Injection site bruising [Recovering/Resolving]
  - Injection site papule [Recovering/Resolving]
  - Injection site discolouration [Recovering/Resolving]
  - Pyrexia [Recovered/Resolved]
  - Oropharyngeal pain [Recovered/Resolved]

NARRATIVE: CASE EVENT DATE: 20230111
